FAERS Safety Report 19573482 (Version 23)
Quarter: 2022Q3

REPORT INFORMATION
  Report Type: Spontaneous
  Country: GB (occurrence: GB)
  Receive Date: 20210717
  Receipt Date: 20220822
  Transmission Date: 20221026
  Serious: Yes (Hospitalization, Other)
  Sender: FDA-Public Use
  Company Number: GB-EMA-DD-20190204-171053

PATIENT
  Age: 27 Year
  Sex: Male

DRUGS (41)
  1. OLANZAPINE [Suspect]
     Active Substance: OLANZAPINE
     Indication: Product used for unknown indication
     Route: 065
     Dates: start: 201801
  2. OLANZAPINE [Suspect]
     Active Substance: OLANZAPINE
     Route: 065
     Dates: start: 201811
  3. OLANZAPINE [Suspect]
     Active Substance: OLANZAPINE
     Route: 065
  4. CLOZARIL [Suspect]
     Active Substance: CLOZAPINE
     Indication: Schizophrenia
     Route: 048
     Dates: start: 20181212, end: 20181231
  5. CLOZARIL [Suspect]
     Active Substance: CLOZAPINE
     Route: 048
     Dates: start: 20181115
  6. CLOZARIL [Suspect]
     Active Substance: CLOZAPINE
     Route: 048
     Dates: start: 20191120, end: 20191202
  7. CLOZARIL [Suspect]
     Active Substance: CLOZAPINE
     Route: 065
     Dates: start: 20181231
  8. CLOZARIL [Suspect]
     Active Substance: CLOZAPINE
     Route: 065
     Dates: start: 20191202
  9. CLOZARIL [Suspect]
     Active Substance: CLOZAPINE
     Route: 065
     Dates: start: 20211231
  10. LI-LIQUID HS [Concomitant]
     Indication: Product used for unknown indication
     Dosage: 15 ML (600MG), QD, 15 MILLILITER, ONCE A DAY(15 MILLILITER, DAILY (600MG)
     Route: 005
  11. LI-LIQUID HS [Concomitant]
     Dosage: 1 DF, QD (PM)
     Route: 005
  12. LI-LIQUID HS [Concomitant]
     Dosage: QD (PM)
     Route: 005
  13. LI-LIQUID HS [Concomitant]
     Dosage: PM
     Route: 005
  14. LI-LIQUID HS [Concomitant]
     Dosage: 15ML (600 MG) NOCTE, QD15 MILLILITER, QD
  15. LI-LIQUID HS [Concomitant]
     Dosage: PM
  16. QUETIAPINE [Concomitant]
     Active Substance: QUETIAPINE
     Indication: Product used for unknown indication
     Route: 065
  17. QUETIAPINE [Concomitant]
     Active Substance: QUETIAPINE
     Route: 065
  18. QUETIAPINE [Concomitant]
     Active Substance: QUETIAPINE
     Route: 065
  19. QUETIAPINE [Concomitant]
     Active Substance: QUETIAPINE
     Route: 065
  20. QUETIAPINE [Concomitant]
     Active Substance: QUETIAPINE
     Route: 065
  21. QUETIAPINE [Concomitant]
     Active Substance: QUETIAPINE
     Route: 065
  22. VALPROIC ACID [Concomitant]
     Active Substance: VALPROIC ACID
     Indication: Product used for unknown indication
     Route: 065
  23. VALPROIC ACID [Concomitant]
     Active Substance: VALPROIC ACID
     Route: 065
  24. VALPROIC ACID [Concomitant]
     Active Substance: VALPROIC ACID
     Route: 065
  25. VALPROIC ACID [Concomitant]
     Active Substance: VALPROIC ACID
     Dosage: UNK, DAILY AM
     Route: 065
  26. VALPROIC ACID [Concomitant]
     Active Substance: VALPROIC ACID
     Dosage: UNK, DAILY PM
     Route: 065
  27. VALPROIC ACID [Concomitant]
     Active Substance: VALPROIC ACID
     Route: 065
  28. VALPROIC ACID [Concomitant]
     Active Substance: VALPROIC ACID
     Route: 065
  29. VALPROIC ACID [Concomitant]
     Active Substance: VALPROIC ACID
     Route: 065
  30. CLONAZEPAM [Concomitant]
     Active Substance: CLONAZEPAM
     Indication: Product used for unknown indication
     Route: 048
  31. CLONAZEPAM [Concomitant]
     Active Substance: CLONAZEPAM
     Route: 048
  32. CLONAZEPAM [Concomitant]
     Active Substance: CLONAZEPAM
     Route: 065
  33. CLONAZEPAM [Concomitant]
     Active Substance: CLONAZEPAM
     Route: 065
  34. CLONAZEPAM [Concomitant]
     Active Substance: CLONAZEPAM
     Route: 065
  35. CLONAZEPAM [Concomitant]
     Active Substance: CLONAZEPAM
     Route: 065
  36. LITHIUM CITRATE [Concomitant]
     Active Substance: LITHIUM CITRATE
     Indication: Product used for unknown indication
     Dosage: QD (PM)
     Route: 005
  37. LITHIUM CITRATE [Concomitant]
     Active Substance: LITHIUM CITRATE
     Dosage: 15 ML (600MG), DAILY
     Route: 065
  38. LITHIUM CITRATE [Concomitant]
     Active Substance: LITHIUM CITRATE
     Route: 065
  39. LITHIUM CITRATE [Concomitant]
     Active Substance: LITHIUM CITRATE
     Dosage: 15 ML (600MG), DAILY
     Route: 005
  40. LITHIUM CITRATE [Concomitant]
     Active Substance: LITHIUM CITRATE
     Dosage: 15ML (600 MG) NOCTE, QD 15 MILLILITER, QD
     Route: 005
  41. LITHIUM CITRATE [Concomitant]
     Active Substance: LITHIUM CITRATE
     Route: 005

REACTIONS (12)
  - Malaise [Unknown]
  - Neutropenia [Recovered/Resolved]
  - Neutropenia [Recovered/Resolved]
  - White blood cell count increased [Recovered/Resolved]
  - Neutrophil count increased [Recovered/Resolved]
  - Eosinophilia [Recovered/Resolved]
  - White blood cell count decreased [Recovered/Resolved]
  - Abnormal behaviour [Unknown]
  - Aggression [Unknown]
  - White blood cell count decreased [Recovered/Resolved]
  - Drug ineffective [Unknown]
  - Off label use [Unknown]

NARRATIVE: CASE EVENT DATE: 20180101
